FAERS Safety Report 7005013-1 (Version None)
Quarter: 2010Q3

REPORT INFORMATION
  Report Type: 
  Country: None (occurrence: None)
  Receive Date: 20100920
  Receipt Date: 20100920
  Transmission Date: 20110219
  Serious: Yes (Other)
  Sender: FDA-Public Use
  Company Number: None

PATIENT
  Age: 39 Year
  Sex: Female
  Weight: 88 kg

DRUGS (1)
  1. SULFAMETHOXAZOLE AND TRIMETHOPRIM [Suspect]
     Indication: URINARY TRACT INFECTION
     Dosage: 1 TAB  PO
     Route: 048
     Dates: start: 20100731, end: 20100731

REACTIONS (6)
  - ANGIOEDEMA [None]
  - DRY MOUTH [None]
  - LIP SWELLING [None]
  - PHARYNGEAL OEDEMA [None]
  - RASH [None]
  - URTICARIA [None]
